FAERS Safety Report 10343473 (Version 2)
Quarter: 2014Q3

REPORT INFORMATION
  Report Type: Spontaneous
  Country: FR (occurrence: None)
  Receive Date: 20140723
  Receipt Date: 20140731
  Transmission Date: 20150326
  Serious: Yes (Other)
  Sender: FDA-Public Use
  Company Number: AUR-APL-2014-07794

PATIENT
  Age: 64 Year
  Sex: Female

DRUGS (5)
  1. ONDANSETRON [Suspect]
     Active Substance: ONDANSETRON
     Indication: PROPHYLAXIS OF NAUSEA AND VOMITING
     Route: 042
  2. FLUOROURACIL (FLUOROURACIL) [Suspect]
     Active Substance: FLUOROURACIL
     Indication: COLON NEOPLASM
     Dosage: 4450 IN 3 DAYS, CYCLIC (12 COURSES)
     Route: 042
     Dates: start: 20110202, end: 20110713
  3. OXALIPLATIN (OXALIPLATIN) [Suspect]
     Active Substance: OXALIPLATIN
     Indication: COLON NEOPLASM
     Dosage: 135 MG, 12 COURSES,
     Route: 042
     Dates: start: 20110202, end: 20110713
  4. CALCIUM FOLINATE [Suspect]
     Active Substance: LEUCOVORIN CALCIUM
     Indication: COLON NEOPLASM
     Dosage: 630 MG, 12 COURSES,
     Route: 042
     Dates: start: 20110202, end: 20110713
  5. SOLU-MEDROL [Suspect]
     Active Substance: METHYLPREDNISOLONE SODIUM SUCCINATE
     Indication: PROPHYLAXIS OF NAUSEA AND VOMITING
     Route: 042

REACTIONS (4)
  - Splenomegaly [None]
  - Portal hypertension [None]
  - Cholestasis [None]
  - Thrombocytopenia [None]

NARRATIVE: CASE EVENT DATE: 20110101
